FAERS Safety Report 4915379-1 (Version None)
Quarter: 2006Q1

REPORT INFORMATION
  Report Type: 
  Country: None (occurrence: None)
  Receive Date: 20060217
  Receipt Date: 20050422
  Transmission Date: 20060701
  Serious: Yes (Hospitalization, Disabling)
  Sender: FDA-Public Use
  Company Number: US-MERCK-0504USA04209

PATIENT
  Age: 58 Year
  Sex: Male

DRUGS (10)
  1. VIOXX [Suspect]
     Route: 048
     Dates: start: 20020701, end: 20040701
  2. VIOXX [Suspect]
     Route: 048
     Dates: start: 19990817, end: 20020301
  3. ASPIRIN [Concomitant]
     Indication: ISCHAEMIC HEART DISEASE PROPHYLAXIS
     Route: 048
     Dates: start: 19980101, end: 20020301
  4. GLYBURIDE [Concomitant]
     Route: 048
  5. PRAVACHOL [Concomitant]
     Indication: HYPERCHOLESTEROLAEMIA
     Route: 065
     Dates: start: 20010101, end: 20020301
  6. FOLIC ACID [Concomitant]
     Route: 065
  7. NIASPAN [Concomitant]
     Indication: HYPERCHOLESTEROLAEMIA
     Route: 048
     Dates: start: 20010101, end: 20020301
  8. AVANDIA [Concomitant]
     Route: 065
  9. ZETIA [Concomitant]
     Indication: HYPERCHOLESTEROLAEMIA
     Route: 065
  10. VITAMINS (UNSPECIFIED) [Concomitant]
     Route: 065

REACTIONS (27)
  - ANAEMIA [None]
  - ARTERIOSCLEROSIS CORONARY ARTERY [None]
  - BLOOD CHLORIDE DECREASED [None]
  - BLOOD GLUCOSE INCREASED [None]
  - BLOOD SODIUM DECREASED [None]
  - CAROTID ARTERY ANEURYSM [None]
  - CORONARY ARTERY DISEASE [None]
  - CORONARY ARTERY OCCLUSION [None]
  - CORONARY ARTERY STENOSIS [None]
  - DIABETES MELLITUS NON-INSULIN-DEPENDENT [None]
  - DIABETIC NEUROPATHY [None]
  - DYSPEPSIA [None]
  - DYSPHAGIA [None]
  - ERECTILE DYSFUNCTION [None]
  - GASTROOESOPHAGEAL REFLUX DISEASE [None]
  - HIATUS HERNIA [None]
  - HYPERTENSION [None]
  - LACUNAR INFARCTION [None]
  - LERICHE SYNDROME [None]
  - MALIGNANT HYPERTENSION [None]
  - METABOLIC SYNDROME [None]
  - MYOCARDIAL ISCHAEMIA [None]
  - OESOPHAGEAL DISORDER [None]
  - PERIPHERAL VASCULAR DISORDER [None]
  - ROTATOR CUFF SYNDROME [None]
  - SMALL INTESTINE ULCER [None]
  - VASCULAR INSUFFICIENCY [None]
